FAERS Safety Report 4996473-6 (Version None)
Quarter: 2006Q2

REPORT INFORMATION
  Report Type: 
  Country: None (occurrence: None)
  Receive Date: 20060509
  Receipt Date: 20060427
  Transmission Date: 20061013
  Serious: Yes (Hospitalization)
  Sender: FDA-Public Use
  Company Number: CA-JNJFOC-20060500127

PATIENT
  Sex: Female
  Weight: 63 kg

DRUGS (40)
  1. REMICADE [Suspect]
  2. REMICADE [Suspect]
  3. REMICADE [Suspect]
  4. REMICADE [Suspect]
     Indication: CROHN'S DISEASE
  5. PLACEBO [Suspect]
  6. PLACEBO [Suspect]
  7. PLACEBO [Suspect]
  8. PLACEBO [Suspect]
  9. PLACEBO [Suspect]
  10. PLACEBO [Suspect]
  11. PLACEBO [Suspect]
  12. PLACEBO [Suspect]
  13. PLACEBO [Suspect]
  14. PLACEBO [Suspect]
  15. PLACEBO [Suspect]
  16. PLACEBO [Suspect]
  17. PLACEBO [Suspect]
  18. PLACEBO [Suspect]
  19. PLACEBO [Suspect]
     Indication: CROHN'S DISEASE
  20. METHOTREXATE [Suspect]
  21. METHOTREXATE [Suspect]
  22. METHOTREXATE [Suspect]
  23. METHOTREXATE [Suspect]
  24. METHOTREXATE [Suspect]
  25. METHOTREXATE [Suspect]
  26. METHOTREXATE [Suspect]
  27. METHOTREXATE [Suspect]
  28. METHOTREXATE [Suspect]
  29. METHOTREXATE [Suspect]
  30. METHOTREXATE [Suspect]
  31. METHOTREXATE [Suspect]
  32. METHOTREXATE [Suspect]
  33. METHOTREXATE [Suspect]
  34. METHOTREXATE [Suspect]
     Indication: CROHN'S DISEASE
  35. PREDNISONE TAB [Concomitant]
  36. PREDNISONE TAB [Concomitant]
  37. PREDNISONE TAB [Concomitant]
  38. PREDNISONE TAB [Concomitant]
  39. PREDNISONE TAB [Concomitant]
  40. PREDNISONE TAB [Concomitant]
     Indication: CROHN'S DISEASE
     Dosage: WEEKLY TAPERED DOSES FROM 40.0 MG -15.0MG

REACTIONS (1)
  - APPENDICITIS [None]
